FAERS Safety Report 8334744-6 (Version None)
Quarter: 2012Q2

REPORT INFORMATION
  Report Type: 
  Country: None (occurrence: None)
  Receive Date: 20120503
  Receipt Date: 20120418
  Transmission Date: 20120825
  Serious: Yes (Other)
  Sender: FDA-Public Use
  Company Number: CN-JNJFOC-20110406144

PATIENT
  Sex: Female

DRUGS (4)
  1. LEXAPRO [Suspect]
     Indication: PRODUCT USED FOR UNKNOWN INDICATION
     Route: 048
     Dates: start: 20110301, end: 20110403
  2. LEXAPRO [Suspect]
     Route: 048
     Dates: start: 20110408
  3. RISPERDAL [Suspect]
     Indication: SCHIZOPHRENIA
     Dosage: 0.5 MG IN THE MORNING AND 1 MG AT NIGHT
     Route: 048
     Dates: start: 20110408, end: 20110413
  4. INVEGA [Suspect]
     Indication: SCHIZOPHRENIA
     Route: 048
     Dates: start: 20110301, end: 20110403

REACTIONS (4)
  - CARDIAC ENZYMES INCREASED [None]
  - SOMNOLENCE [None]
  - ASTHENIA [None]
  - INFLUENZA LIKE ILLNESS [None]
